FAERS Safety Report 14664508 (Version 1)
Quarter: 2018Q1

REPORT INFORMATION
  Report Type: Spontaneous
  Country: TR (occurrence: TR)
  Receive Date: 20180321
  Receipt Date: 20180321
  Transmission Date: 20180509
  Serious: Yes (Other)
  Sender: FDA-Public Use
  Company Number: TR-EPIC PHARMA LLC-2018EPC00148

PATIENT
  Age: 2 Week
  Sex: Male
  Weight: 1.82 kg

DRUGS (6)
  1. INSULIN [Concomitant]
     Active Substance: INSULIN NOS
     Dosage: 0.6 U/KG/DAY
     Route: 042
  2. GLYBURIDE. [Suspect]
     Active Substance: GLYBURIDE
     Dosage: 1 MG/KG/DAY
     Route: 065
  3. INSULIN [Concomitant]
     Active Substance: INSULIN NOS
     Dosage: 4 U/KG/DAY
     Route: 042
  4. GLYBURIDE. [Suspect]
     Active Substance: GLYBURIDE
     Indication: NEONATAL DIABETES MELLITUS
     Dosage: 0.1 MG/KG/DAY
     Route: 065
  5. INSULIN [Concomitant]
     Active Substance: INSULIN NOS
     Indication: HYPERGLYCAEMIA
     Dosage: 0.3 U/KG/DAY
     Route: 042
  6. INSULIN [Concomitant]
     Active Substance: INSULIN NOS
     Dosage: UNK
     Route: 058

REACTIONS (2)
  - Neonatal diabetes mellitus [Recovered/Resolved]
  - Insulin resistance [Recovered/Resolved]
